FAERS Safety Report 19840782 (Version 2)
Quarter: 2021Q3

REPORT INFORMATION
  Report Type: Spontaneous
  Country: RU (occurrence: RU)
  Receive Date: 20210915
  Receipt Date: 20210921
  Transmission Date: 20211014
  Serious: Yes (Other)
  Sender: FDA-Public Use
  Company Number: RU-ASTRAZENECA-2021A722782

PATIENT
  Age: 30 Year
  Sex: Male

DRUGS (3)
  1. SYMBICORT [Suspect]
     Active Substance: BUDESONIDE\FORMOTEROL FUMARATE DIHYDRATE
     Indication: ASTHMA
     Route: 055
  2. CORONAVIR [Concomitant]
     Dosage: UNKNOWN
     Route: 065
  3. HEPARIN [Concomitant]
     Active Substance: HEPARIN SODIUM
     Dosage: UNKNOWN
     Route: 065

REACTIONS (2)
  - COVID-19 [Recovered/Resolved]
  - Lung disorder [Unknown]
